FAERS Safety Report 4876509-3 (Version None)
Quarter: 2005Q4

REPORT INFORMATION
  Report Type: 
  Country: None (occurrence: None)
  Receive Date: 20051206
  Receipt Date: 20050914
  Transmission Date: 20060501
  Serious: No
  Sender: FDA-Public Use
  Company Number: USA0507102669

PATIENT
  Age: 51 Year
  Sex: Male
  Weight: 81 kg

DRUGS (1)
  1. CYMBALTA [Suspect]
     Dates: start: 20040901, end: 20050301

REACTIONS (3)
  - EMOTIONAL DISTRESS [None]
  - MYOCLONUS [None]
  - TREMOR [None]
